FAERS Safety Report 22308581 (Version 2)
Quarter: 2024Q2

REPORT INFORMATION
  Report Type: Spontaneous
  Country: US (occurrence: None)
  Receive Date: 20230511
  Receipt Date: 20240526
  Transmission Date: 20240716
  Serious: No
  Sender: FDA-Public Use
  Company Number: US-ROCHE-3246111

PATIENT
  Age: 39 Year
  Sex: Female
  Weight: 83.99 kg

DRUGS (4)
  1. OCREVUS [Suspect]
     Active Substance: OCRELIZUMAB
     Indication: Multiple sclerosis
     Dosage: EVERY 6 MONTHS
     Route: 042
     Dates: start: 20221207, end: 20221207
  2. ACETAMINOPHEN [Concomitant]
     Active Substance: ACETAMINOPHEN
     Dosage: ONE TABLET BY MOUTH 30 MINUTES PRIOR TO INFUSION.
     Route: 048
  3. DIPHENHYDRAMINE [Concomitant]
     Active Substance: DIPHENHYDRAMINE
     Dosage: ONE CAPSULE BY MOUTH 30 MINUTES PRIOR TO INFUSION
     Route: 048
  4. METHYLPREDNISOLONE [Concomitant]
     Active Substance: METHYLPREDNISOLONE
     Dosage: ADMINISTER BY SLOW IV PUSH OVER 3 MINUTES, 30 MINUTES PRIOR TO?INFUSION.
     Route: 042

REACTIONS (8)
  - Swollen tongue [Recovered/Resolved]
  - Tongue discomfort [Recovered/Resolved]
  - Tongue pruritus [Recovered/Resolved]
  - Brain fog [Recovered/Resolved]
  - Fatigue [Recovered/Resolved]
  - Paraesthesia [Recovered/Resolved]
  - Burning sensation [Recovered/Resolved]
  - Pain in extremity [Recovered/Resolved]

NARRATIVE: CASE EVENT DATE: 20221207
